FAERS Safety Report 12288273 (Version 1)
Quarter: 2016Q2

REPORT INFORMATION
  Report Type: Report from Study
  Country: GB (occurrence: GB)
  Receive Date: 20160420
  Receipt Date: 20160420
  Transmission Date: 20160815
  Serious: Yes (Other)
  Sender: FDA-Public Use
  Company Number: GB-GILEAD-2016-0209131

PATIENT
  Sex: Male

DRUGS (3)
  1. IDELALISIB [Suspect]
     Active Substance: IDELALISIB
     Dosage: DOSE REDUCED
     Route: 065
  2. IDELALISIB [Suspect]
     Active Substance: IDELALISIB
     Dosage: FULL DOSE
     Route: 065
  3. IDELALISIB [Suspect]
     Active Substance: IDELALISIB
     Indication: PRODUCT USED FOR UNKNOWN INDICATION
     Dosage: FULL DOSE
     Route: 065

REACTIONS (2)
  - Cytomegalovirus infection [Unknown]
  - Diarrhoea [Recovered/Resolved]
